FAERS Safety Report 4493897-0 (Version None)
Quarter: 2004Q4

REPORT INFORMATION
  Report Type: 
  Country: None (occurrence: None)
  Receive Date: 20041105
  Receipt Date: 20041027
  Transmission Date: 20050328
  Serious: Yes (Other)
  Sender: FDA-Public Use
  Company Number: CA-JNJFOC-20041005487

PATIENT
  Sex: Male

DRUGS (10)
  1. REMICADE [Suspect]
     Dosage: PER VIAL
     Route: 042
  2. REMICADE [Suspect]
     Route: 042
  3. REMICADE [Suspect]
     Route: 042
  4. AVAPRO [Concomitant]
  5. ASPIRIN [Concomitant]
  6. DERMASONE [Concomitant]
  7. LIPITOR [Concomitant]
  8. METOPROLOL SUCCINATE [Concomitant]
  9. NITROGLYCERIN [Concomitant]
  10. ACITRETIN [Concomitant]

REACTIONS (7)
  - BLOOD PRESSURE DECREASED [None]
  - FLUSHING [None]
  - HEART RATE INCREASED [None]
  - HYPERHIDROSIS [None]
  - INFUSION RELATED REACTION [None]
  - PALLOR [None]
  - RESPIRATORY RATE INCREASED [None]
